FAERS Safety Report 20023303 (Version 2)
Quarter: 2022Q1

REPORT INFORMATION
  Report Type: Spontaneous
  Country: DE (occurrence: DE)
  Receive Date: 20211102
  Receipt Date: 20220220
  Transmission Date: 20220423
  Serious: Yes (Death)
  Sender: FDA-Public Use
  Company Number: DE-002147023-NVSC2020DE124637

PATIENT
  Sex: Female
  Weight: 81.6 kg

DRUGS (9)
  1. LETROZOLE [Suspect]
     Active Substance: LETROZOLE
     Indication: Hormone receptor positive HER2 negative breast cancer
     Route: 048
     Dates: start: 20200407
  2. LETROZOLE [Suspect]
     Active Substance: LETROZOLE
     Route: 048
     Dates: start: 20210401
  3. KISQALI [Suspect]
     Active Substance: RIBOCICLIB
     Indication: Hormone receptor positive HER2 negative breast cancer
     Dosage: REGIMEN 21 DAYS INTAKE, 7 DAYS PAUSE
     Route: 048
     Dates: start: 20200416, end: 20200513
  4. KISQALI [Suspect]
     Active Substance: RIBOCICLIB
     Dosage: REGIMEN 21 DAYS INTAKE, 7 DAYS PAUSE
     Route: 048
     Dates: start: 20210401, end: 20210503
  5. KISQALI [Suspect]
     Active Substance: RIBOCICLIB
     Dosage: REGIMEN 21 DAYS INTAKE, 7 DAYS PAUSE
     Route: 048
     Dates: start: 20200915, end: 20210330
  6. KISQALI [Suspect]
     Active Substance: RIBOCICLIB
     Dosage: REGIMEN 21 DAYS INTAKE, 7 DAYS PAUSE
     Route: 048
     Dates: start: 20200526, end: 20200914
  7. ZOLEDRONIC ACID [Concomitant]
     Active Substance: ZOLEDRONIC ACID
     Indication: Product used for unknown indication
     Route: 065
  8. ALLOPURINOL [Concomitant]
     Active Substance: ALLOPURINOL
     Indication: Anaemia
     Dates: start: 20200520
  9. ALLOPURINOL [Concomitant]
     Active Substance: ALLOPURINOL
     Indication: Hyperuricaemia

REACTIONS (6)
  - Malignant neoplasm progression [Fatal]
  - General physical health deterioration [Fatal]
  - Neoplasm progression [Fatal]
  - Anaemia [Not Recovered/Not Resolved]
  - Blood creatinine increased [Recovering/Resolving]
  - Hyperuricaemia [Not Recovered/Not Resolved]

NARRATIVE: CASE EVENT DATE: 20200423
